FAERS Safety Report 18436480 (Version 1)
Quarter: 2020Q4

REPORT INFORMATION
  Report Type: Spontaneous
  Country: CA (occurrence: CA)
  Receive Date: 20201028
  Receipt Date: 20201028
  Transmission Date: 20210114
  Serious: Yes (Other)
  Sender: FDA-Public Use
  Company Number: CA-PFIZER INC-2020398650

PATIENT
  Age: 7 Decade
  Sex: Female

DRUGS (3)
  1. ROSUVASTATIN. [Concomitant]
     Active Substance: ROSUVASTATIN
     Dosage: 40 MG
  2. LORLATINIB [Suspect]
     Active Substance: LORLATINIB
     Dosage: 40 MG, DAILY
  3. LORLATINIB [Suspect]
     Active Substance: LORLATINIB
     Dosage: 100 MG, DAILY

REACTIONS (12)
  - Cognitive disorder [Unknown]
  - Mood swings [Unknown]
  - Dry mouth [Unknown]
  - Dry skin [Unknown]
  - Off label use [Unknown]
  - Diarrhoea [Unknown]
  - Rash [Unknown]
  - Oedema peripheral [Unknown]
  - Electrocardiogram QT prolonged [Unknown]
  - Product use in unapproved indication [Unknown]
  - Aspartate aminotransferase increased [Unknown]
  - Insomnia [Unknown]
